FAERS Safety Report 20744671 (Version 1)
Quarter: 2022Q2

REPORT INFORMATION
  Report Type: Report from Study
  Country: US (occurrence: US)
  Receive Date: 20220425
  Receipt Date: 20220425
  Transmission Date: 20220721
  Serious: Yes (Other)
  Sender: FDA-Public Use
  Company Number: US-PFIZER INC-202200496825

PATIENT
  Age: 45 Year
  Sex: Male

DRUGS (1)
  1. INLYTA [Suspect]
     Active Substance: AXITINIB
     Indication: Renal cancer
     Dosage: UNK
     Dates: start: 20210211

REACTIONS (3)
  - Sepsis [Unknown]
  - COVID-19 [Unknown]
  - Fatigue [Unknown]

NARRATIVE: CASE EVENT DATE: 20211001
